FAERS Safety Report 9262155 (Version 1)
Quarter: 2013Q2

REPORT INFORMATION
  Report Type: Spontaneous
  Country: ES (occurrence: ES)
  Receive Date: 20130430
  Receipt Date: 20130430
  Transmission Date: 20140414
  Serious: Yes (Life-Threatening, Hospitalization)
  Sender: FDA-Public Use
  Company Number: ES-009507513-1304ESP010031

PATIENT
  Age: 53 Year
  Sex: Male

DRUGS (3)
  1. VICTRELIS [Suspect]
     Indication: HEPATITIS C
     Dosage: 800 MG, UNKNOWN INTERVAL/DAY, VO
     Route: 048
     Dates: start: 20121203, end: 20130306
  2. REBETOL [Suspect]
     Dosage: 1200 MG, UNK
     Route: 048
  3. PEGASYS [Suspect]
     Dosage: 180 MICROGRAM, UNK

REACTIONS (2)
  - Appendicitis perforated [Recovered/Resolved]
  - Abdominal sepsis [Recovered/Resolved]
